FAERS Safety Report 6176502-7 (Version None)
Quarter: 2009Q2

REPORT INFORMATION
  Report Type: 
  Country: None (occurrence: None)
  Receive Date: 20090501
  Receipt Date: 20090423
  Transmission Date: 20091009
  Serious: Yes (Hospitalization, Other)
  Sender: FDA-Public Use
  Company Number: PHEH2009US03800

PATIENT
  Sex: Female
  Weight: 95.238 kg

DRUGS (8)
  1. EXELON [Suspect]
     Indication: DEMENTIA ALZHEIMER'S TYPE
     Dosage: 4.6 MG, QD
     Route: 062
     Dates: start: 20090323, end: 20090402
  2. ZEBETA [Concomitant]
     Dosage: 10 MG, BID
  3. SYNTHROID [Concomitant]
     Dosage: 150 MG, UNK
  4. IMDUR [Concomitant]
     Dosage: 30 MG 1/2 OD
  5. NAMENDA [Concomitant]
     Dosage: 10 MG, BID
  6. PLAVIX [Concomitant]
     Dosage: 75 MG, OD
  7. CIPRO [Concomitant]
     Dosage: 500 MG, BID
  8. SEROQUEL [Concomitant]
     Dosage: 50 MG, 2 QHS

REACTIONS (16)
  - ASPARTATE AMINOTRANSFERASE INCREASED [None]
  - ATELECTASIS [None]
  - BLOOD CALCIUM DECREASED [None]
  - BLOOD GLUCOSE INCREASED [None]
  - BLOOD OSMOLARITY INCREASED [None]
  - BLOOD POTASSIUM DECREASED [None]
  - CYANOSIS [None]
  - ELECTROCARDIOGRAM ABNORMAL [None]
  - FOAMING AT MOUTH [None]
  - FULL BLOOD COUNT ABNORMAL [None]
  - GRAND MAL CONVULSION [None]
  - LOSS OF CONSCIOUSNESS [None]
  - METABOLIC FUNCTION TEST [None]
  - MONOCYTE COUNT INCREASED [None]
  - POSTICTAL STATE [None]
  - URINE ANALYSIS ABNORMAL [None]
